FAERS Safety Report 6143663-5 (Version None)
Quarter: 2009Q2

REPORT INFORMATION
  Report Type: 
  Country: None (occurrence: None)
  Receive Date: 20090403
  Receipt Date: 20090324
  Transmission Date: 20091009
  Serious: Yes (Other)
  Sender: FDA-Public Use
  Company Number: US-JNJCH-2009008581

PATIENT
  Age: 50 Year
  Sex: Female

DRUGS (1)
  1. PURELL ORIGINAL [Suspect]
     Indication: DRUG USE FOR UNKNOWN INDICATION
     Dosage: TEXT:UNSPECIFIED
     Route: 047

REACTIONS (3)
  - ACCIDENTAL EXPOSURE [None]
  - EYE BURNS [None]
  - EYE IRRITATION [None]
